FAERS Safety Report 23593358 (Version 1)
Quarter: 2024Q1

REPORT INFORMATION
  Report Type: Spontaneous
  Country: US (occurrence: US)
  Receive Date: 20240304
  Receipt Date: 20240304
  Transmission Date: 20240410
  Serious: Yes (Other)
  Sender: FDA-Public Use
  Company Number: US-Covis Pharma GmbH-2024COV00227

PATIENT
  Age: 61 Year
  Sex: Female

DRUGS (3)
  1. RILUZOLE [Suspect]
     Active Substance: RILUZOLE
     Route: 048
  2. RELYVRIO [Suspect]
     Active Substance: SODIUM PHENYLBUTYRATE\TAURURSODIOL
     Indication: Amyotrophic lateral sclerosis
     Dosage: 1 DOSAGE FORM 1 SACHET ONCE DAILY FOR 3 WEEKS THEN 1 SACHET TWICE DAILY, 2/DAYS
     Dates: start: 202306
  3. BENADRYL [Concomitant]
     Active Substance: DIPHENHYDRAMINE HYDROCHLORIDE

REACTIONS (12)
  - Tunnel vision [Unknown]
  - Blood pressure increased [Unknown]
  - Peripheral swelling [Recovering/Resolving]
  - Joint swelling [Unknown]
  - Flatulence [Unknown]
  - Diarrhoea [Unknown]
  - Dizziness [Unknown]
  - Rash pruritic [Unknown]
  - Illness [Unknown]
  - Gastrointestinal disorder [Unknown]
  - Abdominal pain upper [Unknown]
  - Off label use [Unknown]
